FAERS Safety Report 8852299 (Version 1)
Quarter: 2012Q4

REPORT INFORMATION
  Report Type: Report from Study
  Country: US (occurrence: US)
  Receive Date: 20121022
  Receipt Date: 20121022
  Transmission Date: 20130627
  Serious: Yes (Hospitalization)
  Sender: FDA-Public Use
  Company Number: US-ABBOTT-12P-163-0995211-00

PATIENT
  Age: 63 None
  Sex: Female
  Weight: 72.64 kg

DRUGS (7)
  1. HUMIRA [Suspect]
     Indication: PSORIATIC ARTHROPATHY
     Route: 058
     Dates: start: 201205, end: 201207
  2. HUMIRA [Suspect]
     Dates: start: 201208
  3. IBUPROFEN [Suspect]
     Indication: HYPERSENSITIVITY
  4. IBUPROFEN [Suspect]
     Indication: PARANASAL SINUS HYPERSECRETION
  5. UNSPECIFIED INGREDIENT [Suspect]
     Indication: PRODUCT USED FOR UNKNOWN INDICATION
  6. CLARITIN [Concomitant]
     Indication: HYPERSENSITIVITY
  7. ZYXAC [Concomitant]
     Indication: BLOOD PRESSURE

REACTIONS (11)
  - Blood sodium decreased [Recovered/Resolved]
  - Blood potassium decreased [Recovered/Resolved]
  - Hepatitis [Recovered/Resolved]
  - Nausea [Recovered/Resolved]
  - Vomiting [Recovered/Resolved]
  - Hypersensitivity [Unknown]
  - Sinus congestion [Unknown]
  - Inappropriate schedule of drug administration [Unknown]
  - Urinary tract infection [Recovered/Resolved]
  - Paranasal sinus hypersecretion [Recovered/Resolved]
  - Multiple allergies [None]
